FAERS Safety Report 17306305 (Version 2)
Quarter: 2020Q1

REPORT INFORMATION
  Report Type: Report from Study
  Country: None (occurrence: PT)
  Receive Date: 20200123
  Receipt Date: 20200204
  Transmission Date: 20200409
  Serious: Yes (Other)
  Sender: FDA-Public Use
  Company Number: PT-ABBVIE-20K-130-3245521-00

PATIENT
  Age: 42 Year
  Sex: Female

DRUGS (1)
  1. HUMIRA [Suspect]
     Active Substance: ADALIMUMAB
     Indication: CROHN^S DISEASE
     Route: 058
     Dates: start: 20190430

REACTIONS (1)
  - Bronchitis chronic [Not Recovered/Not Resolved]

NARRATIVE: CASE EVENT DATE: 201912
